FAERS Safety Report 9922429 (Version 1)
Quarter: 2014Q1

REPORT INFORMATION
  Report Type: Spontaneous
  Country: US (occurrence: US)
  Receive Date: 20140225
  Receipt Date: 20140225
  Transmission Date: 20141002
  Serious: No
  Sender: FDA-Public Use
  Company Number: US-009507513-1402USA011102

PATIENT
  Sex: Female

DRUGS (4)
  1. PROVENTIL [Suspect]
     Indication: ASTHMA
     Dosage: 2 DF, TID
     Route: 055
  2. TRIAMTERENE [Concomitant]
  3. MOTRIN [Concomitant]
  4. PENICILLIN (UNSPECIFIED) [Concomitant]

REACTIONS (5)
  - Dyspnoea [Unknown]
  - Drug dose omission [Unknown]
  - Product quality issue [Unknown]
  - Drug hypersensitivity [Unknown]
  - Rash [Unknown]
